FAERS Safety Report 4380261-8 (Version None)
Quarter: 2004Q2

REPORT INFORMATION
  Report Type: 
  Country: None (occurrence: None)
  Receive Date: 20040616
  Receipt Date: 20040616
  Transmission Date: 20050107
  Serious: Yes (Hospitalization)
  Sender: FDA-Public Use
  Company Number: None

PATIENT
  Sex: Male
  Weight: 35 kg

DRUGS (1)
  1. DEFEROXAMINE [Suspect]
     Indication: SICKLE CELL ANAEMIA
     Dosage: 1000 MG SUBQ 5X/WK
     Dates: start: 20040521, end: 20040527

REACTIONS (5)
  - CELLULITIS [None]
  - INFUSION SITE INFECTION [None]
  - INFUSION SITE PAIN [None]
  - MEDICATION ERROR [None]
  - PHARMACEUTICAL PRODUCT COMPLAINT [None]
